FAERS Safety Report 8977829 (Version 2)
Quarter: 2012Q4

REPORT INFORMATION
  Report Type: 
  Country: CA (occurrence: US)
  Receive Date: 20121219
  Receipt Date: 20121226
  Transmission Date: 20130627
  Serious: Yes (Death, Other)
  Sender: FDA-Public Use
  Company Number: CA-009507513-1212USA006868

PATIENT
  Sex: Female

DRUGS (2)
  1. TEMOZOLOMIDE [Suspect]
     Indication: GLIOBLASTOMA
     Dosage: 250 mg, UNK
  2. TEMOZOLOMIDE [Suspect]
     Dosage: UNK

REACTIONS (2)
  - Overdose [Fatal]
  - Incorrect dose administered [Fatal]
